FAERS Safety Report 23521885 (Version 1)
Quarter: 2024Q1

REPORT INFORMATION
  Report Type: Other
  Country: US (occurrence: US)
  Receive Date: 20240214
  Receipt Date: 20240214
  Transmission Date: 20240410
  Serious: Yes (Life-Threatening, Hospitalization)
  Sender: FDA-Public Use
  Company Number: US-Adaptis Pharma Private Limited-2153181

PATIENT
  Age: 72 Year
  Sex: Male

DRUGS (2)
  1. VALACYCLOVIR HYDROCHLORIDE [Suspect]
     Active Substance: VALACYCLOVIR HYDROCHLORIDE
     Route: 065
  2. TRAMADOL [Concomitant]
     Active Substance: TRAMADOL\TRAMADOL HYDROCHLORIDE
     Route: 065

REACTIONS (8)
  - Neurotoxicity [Recovered/Resolved]
  - Off label use [Unknown]
  - Prescribed overdose [Unknown]
  - Dysdiadochokinesis [Recovered/Resolved]
  - Hallucination, visual [Recovered/Resolved]
  - Dissociation [Recovered/Resolved]
  - Fall [Unknown]
  - Mental status changes [Recovered/Resolved]
